FAERS Safety Report 4769844-0 (Version None)
Quarter: 2005Q3

REPORT INFORMATION
  Report Type: 
  Country: None (occurrence: None)
  Receive Date: 20050912
  Receipt Date: 20050725
  Transmission Date: 20060218
  Serious: No
  Sender: FDA-Public Use
  Company Number: 2005-01584

PATIENT

DRUGS (1)
  1. VELCADE [Suspect]

REACTIONS (1)
  - OEDEMA PERIPHERAL [None]
